FAERS Safety Report 5440886-5 (Version None)
Quarter: 2007Q3

REPORT INFORMATION
  Report Type: 
  Country: None (occurrence: None)
  Receive Date: 20070831
  Receipt Date: 20070821
  Transmission Date: 20080115
  Serious: Yes (Other)
  Sender: FDA-Public Use
  Company Number: CA-PFIZER INC-2007072323

PATIENT
  Sex: Female

DRUGS (4)
  1. CADUET [Suspect]
     Indication: HYPERTENSION
     Dosage: TEXT:10MG/10MG
     Route: 048
     Dates: start: 20070730, end: 20070810
  2. LIPITOR [Suspect]
     Dosage: DAILY DOSE:10MG
     Route: 048
  3. NORVASC [Suspect]
     Dosage: DAILY DOSE:10MG
     Route: 048
  4. DIDROCAL [Concomitant]
     Route: 048

REACTIONS (3)
  - HEADACHE [None]
  - SWOLLEN TONGUE [None]
  - THROAT TIGHTNESS [None]
